FAERS Safety Report 16152590 (Version 2)
Quarter: 2019Q4

REPORT INFORMATION
  Report Type: Spontaneous
  Country: US (occurrence: US)
  Receive Date: 20190403
  Receipt Date: 20191114
  Transmission Date: 20200122
  Serious: No
  Sender: FDA-Public Use
  Company Number: US-SA-2019SA090600

PATIENT
  Age: 15 Year
  Sex: Female

DRUGS (5)
  1. ZYRTEC [Concomitant]
     Active Substance: CETIRIZINE HYDROCHLORIDE
     Dosage: UNK MG
  2. DUPIXENT [Suspect]
     Active Substance: DUPILUMAB
     Indication: DERMATITIS ATOPIC
     Dosage: 300 MG, QOW
     Route: 058
  3. DUPIXENT [Suspect]
     Active Substance: DUPILUMAB
     Indication: RHINITIS ALLERGIC
  4. ELIDEL [Concomitant]
     Active Substance: PIMECROLIMUS
  5. HYDROXYZINE HCL [Concomitant]
     Active Substance: HYDROXYZINE HYDROCHLORIDE

REACTIONS (3)
  - Product use issue [Unknown]
  - Product use in unapproved indication [Unknown]
  - Dermatitis atopic [Unknown]
